FAERS Safety Report 9886023 (Version 2)
Quarter: 2014Q2

REPORT INFORMATION
  Report Type: Spontaneous
  Country: DE (occurrence: DE)
  Receive Date: 20140210
  Receipt Date: 20140423
  Transmission Date: 20141212
  Serious: Yes (Life-Threatening, Hospitalization, Other)
  Sender: FDA-Public Use
  Company Number: DE-GLAXOSMITHKLINE-D0082745A

PATIENT
  Age: 67 Year
  Sex: Female
  Weight: 58 kg

DRUGS (1)
  1. RELVAR ELLIPTA (FLUTICASONE FUROATE/VILANTEROL) [Suspect]
     Indication: ASTHMA
     Route: 055
     Dates: start: 20140120, end: 20140120

REACTIONS (6)
  - Anaphylactic shock [Recovering/Resolving]
  - Respiratory distress [Recovering/Resolving]
  - Resuscitation [Recovered/Resolved]
  - Bronchospasm [Recovering/Resolving]
  - Laryngeal oedema [Recovering/Resolving]
  - Circulatory collapse [Recovering/Resolving]
